FAERS Safety Report 20059128 (Version 1)
Quarter: 2021Q4

REPORT INFORMATION
  Report Type: Spontaneous
  Country: US (occurrence: None)
  Receive Date: 20211111
  Receipt Date: 20211111
  Transmission Date: 20220303
  Serious: No
  Sender: FDA-Public Use
  Company Number: US-ROCHE-2845240

PATIENT
  Sex: Female

DRUGS (3)
  1. GAVRETO [Suspect]
     Active Substance: PRALSETINIB
     Indication: Malignant neoplasm of unknown primary site
     Route: 065
     Dates: start: 20210319
  2. GAVRETO [Suspect]
     Active Substance: PRALSETINIB
     Dosage: 300 MG ALTERNATING WITH 400 MG
     Route: 065
  3. LEVAQUIN [Suspect]
     Active Substance: LEVOFLOXACIN
     Indication: Urinary tract infection
     Route: 065

REACTIONS (3)
  - Gastric disorder [Unknown]
  - Urinary tract infection [Unknown]
  - Abdominal pain upper [Unknown]
